FAERS Safety Report 25923457 (Version 1)
Quarter: 2025Q4

REPORT INFORMATION
  Report Type: Spontaneous
  Country: US (occurrence: US)
  Receive Date: 20251015
  Receipt Date: 20251015
  Transmission Date: 20260118
  Serious: No
  Sender: BIOGEN
  Company Number: US-BIOGEN-2025BI01326857

PATIENT
  Age: 37 Year
  Sex: Female

DRUGS (1)
  1. ZURZUVAE [Suspect]
     Active Substance: ZURANOLONE
     Indication: Perinatal depression
     Route: 050
     Dates: start: 20251008

REACTIONS (6)
  - Hallucination, visual [Unknown]
  - Paraesthesia [Unknown]
  - Muscular weakness [Unknown]
  - Gait disturbance [Unknown]
  - Hypoaesthesia [Unknown]
  - Somnolence [Unknown]

NARRATIVE: CASE EVENT DATE: 20251010
